FAERS Safety Report 8584890-7 (Version None)
Quarter: 2012Q3

REPORT INFORMATION
  Report Type: 
  Country: None (occurrence: None)
  Receive Date: 20120810
  Receipt Date: 20120801
  Transmission Date: 20120928
  Serious: Yes (Other)
  Sender: FDA-Public Use
  Company Number: IT-JNJFOC-20120802897

PATIENT

DRUGS (7)
  1. RALTEGRAVIR [Suspect]
     Indication: HIV INFECTION
     Route: 065
  2. EMTRICITABINE [Suspect]
     Indication: HIV INFECTION
     Route: 065
  3. LAMIVUDINE [Suspect]
     Indication: HIV INFECTION
     Route: 065
  4. ETRAVIRINE [Suspect]
     Indication: HIV INFECTION
     Route: 065
  5. MARAVIROC [Suspect]
     Indication: HIV INFECTION
     Route: 065
  6. DARUNAVIR ETHANOLATE [Suspect]
     Indication: HIV INFECTION
     Route: 065
  7. TENOFOVIR DISOPROXIL FUMARATE [Suspect]
     Indication: HIV INFECTION
     Route: 065

REACTIONS (2)
  - DRUG RESISTANCE [None]
  - VIROLOGIC FAILURE [None]
